FAERS Safety Report 20058064 (Version 1)
Quarter: 2021Q4

REPORT INFORMATION
  Report Type: Spontaneous
  Country: US (occurrence: None)
  Receive Date: 20211111
  Receipt Date: 20211111
  Transmission Date: 20220303
  Serious: No
  Sender: FDA-Public Use
  Company Number: None

PATIENT
  Age: 61 Year
  Sex: Female
  Weight: 63.5 kg

DRUGS (1)
  1. SOTROVIMAB [Suspect]
     Active Substance: SOTROVIMAB
     Indication: COVID-19
     Dosage: OTHER FREQUENCY : ONCE;?
     Route: 042
     Dates: start: 20211109

REACTIONS (7)
  - Chest discomfort [None]
  - Infusion related reaction [None]
  - Dyspnoea [None]
  - Hypersensitivity [None]
  - Pulmonary oedema [None]
  - Atelectasis [None]
  - Pneumonia [None]

NARRATIVE: CASE EVENT DATE: 20211109
